FAERS Safety Report 24066973 (Version 1)
Quarter: 2024Q3

REPORT INFORMATION
  Report Type: Spontaneous
  Country: US (occurrence: US)
  Receive Date: 20240709
  Receipt Date: 20240709
  Transmission Date: 20241016
  Serious: Yes (Hospitalization, Other)
  Sender: SUNOVION
  Company Number: US-SMPA-2024SPA000101

PATIENT

DRUGS (1)
  1. APTIOM [Suspect]
     Active Substance: ESLICARBAZEPINE ACETATE
     Dosage: 400 MG
     Route: 048

REACTIONS (4)
  - Irritable bowel syndrome [Unknown]
  - Partial seizures [Unknown]
  - Generalised tonic-clonic seizure [Unknown]
  - Gastritis [Unknown]
